FAERS Safety Report 7688650-0 (Version None)
Quarter: 2011Q3

REPORT INFORMATION
  Report Type: 
  Country: None (occurrence: None)
  Receive Date: 20110817
  Receipt Date: 20110802
  Transmission Date: 20111222
  Serious: Yes (Death, Hospitalization)
  Sender: FDA-Public Use
  Company Number: US-GLAXOSMITHKLINE-A0788877A

PATIENT
  Age: 61 Year
  Sex: Male
  Weight: 90.9 kg

DRUGS (8)
  1. HUMALOG [Concomitant]
     Dates: start: 19850101, end: 20070301
  2. ASPIRIN [Concomitant]
  3. AVANDIA [Suspect]
     Indication: DIABETES MELLITUS
     Dosage: 8MG PER DAY
     Route: 048
     Dates: start: 20050719, end: 20070324
  4. LANTUS [Concomitant]
  5. GLUCOPHAGE [Concomitant]
     Dates: start: 19900101, end: 20070325
  6. METFORMIN HCL [Concomitant]
     Dates: start: 19900101, end: 20070325
  7. DIABETA [Concomitant]
     Dates: start: 19850101, end: 20070301
  8. GLUCOTROL [Concomitant]
     Dates: start: 19850101, end: 20070301

REACTIONS (2)
  - CARDIAC FAILURE [None]
  - CARDIAC FAILURE CONGESTIVE [None]
